FAERS Safety Report 9236669 (Version 2)
Quarter: 2013Q2

REPORT INFORMATION
  Report Type: Spontaneous
  Country: US (occurrence: US)
  Receive Date: 20130417
  Receipt Date: 20130423
  Transmission Date: 20140414
  Serious: No
  Sender: FDA-Public Use
  Company Number: US-TEVA-398754USA

PATIENT
  Age: 73 Year
  Sex: Female

DRUGS (4)
  1. PROAIR HFA [Suspect]
     Indication: ASTHMA
     Route: 055
     Dates: start: 20130415, end: 20130415
  2. BUDESONIDE [Concomitant]
     Indication: ASTHMA
     Route: 055
  3. CHOLESTEROL MEDICATION [Concomitant]
  4. HYPERTENSION MEDICATION [Concomitant]

REACTIONS (2)
  - Asthma [Recovered/Resolved]
  - Device malfunction [Not Recovered/Not Resolved]
